APPROVED DRUG PRODUCT: GRANISETRON HYDROCHLORIDE
Active Ingredient: GRANISETRON HYDROCHLORIDE
Strength: EQ 1MG BASE/ML (EQ 1MG BASE/ML)
Dosage Form/Route: INJECTABLE;INJECTION
Application: A203454 | Product #002
Applicant: PHARMOBEDIENT CONSULTING LLC
Approved: Apr 4, 2017 | RLD: No | RS: No | Type: DISCN